FAERS Safety Report 25155561 (Version 1)
Quarter: 2025Q2

REPORT INFORMATION
  Report Type: Spontaneous
  Country: US (occurrence: None)
  Receive Date: 20250403
  Receipt Date: 20250403
  Transmission Date: 20250716
  Serious: Yes (Death)
  Sender: FDA-CTU
  Company Number: None

PATIENT
  Age: 73 Year
  Sex: Male
  Weight: 54.8 kg

DRUGS (1)
  1. CARVYKTI [Suspect]
     Active Substance: CILTACABTAGENE AUTOLEUCEL
     Indication: Plasma cell myeloma refractory
     Route: 042
     Dates: start: 20250218, end: 20250218

REACTIONS (9)
  - Toxic encephalopathy [None]
  - Pancytopenia [None]
  - Hypogammaglobulinaemia [None]
  - Neurological decompensation [None]
  - Hypotension [None]
  - Hypoxia [None]
  - Staphylococcus test positive [None]
  - Staphylococcal bacteraemia [None]
  - Metabolic acidosis [None]

NARRATIVE: CASE EVENT DATE: 20250402
